FAERS Safety Report 5403459-6 (Version None)
Quarter: 2007Q3

REPORT INFORMATION
  Report Type: 
  Country: None (occurrence: None)
  Receive Date: 20070713
  Receipt Date: 20060821
  Transmission Date: 20080115
  Serious: Yes (Other)
  Sender: FDA-Public Use
  Company Number: 460585

PATIENT
  Age: 96 Year
  Sex: Female

DRUGS (3)
  1. BONIVA [Suspect]
     Indication: OSTEOPOROSIS
     Dosage: 150 MG 1 PER MONTH ORAL
     Route: 048
     Dates: start: 20060809, end: 20060809
  2. PREDNISONE TAB [Concomitant]
  3. LONOX (ATROPINE SULFATE/DIPHENOXYLATE HYDROCHLORIDE) [Concomitant]

REACTIONS (7)
  - ABDOMINAL DISTENSION [None]
  - BLOOD PRESSURE INCREASED [None]
  - BONE PAIN [None]
  - GASTRIC ULCER [None]
  - MUSCULOSKELETAL CHEST PAIN [None]
  - URINARY INCONTINENCE [None]
  - VOMITING [None]
